FAERS Safety Report 5606897-1 (Version None)
Quarter: 2008Q1

REPORT INFORMATION
  Report Type: 
  Country: None (occurrence: None)
  Receive Date: 20080129
  Receipt Date: 20080116
  Transmission Date: 20080703
  Serious: Yes (Hospitalization)
  Sender: FDA-Public Use
  Company Number: CA-GENENTECH-254281

PATIENT
  Sex: Female
  Weight: 70.8 kg

DRUGS (2)
  1. BEVACIZUMAB [Suspect]
     Indication: BREAST CANCER METASTATIC
     Dosage: 1113 MG, Q3W
     Route: 042
     Dates: start: 20071210
  2. XELODA [Suspect]
     Indication: BREAST CANCER METASTATIC
     Dosage: 4300 MG, UNK
     Route: 048
     Dates: start: 20071209

REACTIONS (1)
  - PLEURAL EFFUSION [None]
